FAERS Safety Report 4349403-4 (Version None)
Quarter: 2004Q2

REPORT INFORMATION
  Report Type: 
  Country: None (occurrence: None)
  Receive Date: 20040428
  Receipt Date: 20040423
  Transmission Date: 20050107
  Serious: Yes (Hospitalization)
  Sender: FDA-Public Use
  Company Number: FR-GLAXOSMITHKLINE-B0330885A

PATIENT
  Age: 50 Year
  Sex: Male

DRUGS (2)
  1. CLAMOXYL [Suspect]
     Indication: NASAL SEPTAL OPERATION
     Route: 048
     Dates: start: 20040128, end: 20040204
  2. TIAPROFENIC ACID [Suspect]
     Indication: NASAL SEPTAL OPERATION
     Route: 048
     Dates: start: 20040128, end: 20040204

REACTIONS (7)
  - ALANINE AMINOTRANSFERASE [None]
  - ASPARTATE AMINOTRANSFERASE [None]
  - ASTHENIA [None]
  - BLOOD BILIRUBIN INCREASED [None]
  - CYTOLYTIC HEPATITIS [None]
  - JAUNDICE [None]
  - RASH [None]
